FAERS Safety Report 7301678-5 (Version None)
Quarter: 2011Q1

REPORT INFORMATION
  Report Type: 
  Country: None (occurrence: None)
  Receive Date: 20110218
  Receipt Date: 20110207
  Transmission Date: 20110831
  Serious: Yes (Other)
  Sender: FDA-Public Use
  Company Number: US-SANOFI-AVENTIS-2011SA008008

PATIENT
  Sex: Male
  Weight: 127.27 kg

DRUGS (2)
  1. MULTAQ [Suspect]
     Route: 048
     Dates: end: 20110101
  2. MULTAQ [Suspect]
     Route: 048
     Dates: start: 20110101

REACTIONS (2)
  - ATRIAL FIBRILLATION [None]
  - INTENTIONAL OVERDOSE [None]
